FAERS Safety Report 6999086-X (Version None)
Quarter: 2010Q3

REPORT INFORMATION
  Report Type: 
  Country: None (occurrence: None)
  Receive Date: 20100920
  Receipt Date: 20100909
  Transmission Date: 20110219
  Serious: Yes (Other)
  Sender: FDA-Public Use
  Company Number: US-ASTRAZENECA-2010SE42417

PATIENT
  Age: 65 Year
  Sex: Male
  Weight: 68.9 kg

DRUGS (1)
  1. NEXIUM [Suspect]
     Indication: GASTROOESOPHAGEAL REFLUX DISEASE
     Route: 048
     Dates: start: 20010101

REACTIONS (10)
  - BARRETT'S OESOPHAGUS [None]
  - DRUG INEFFECTIVE [None]
  - GASTROOESOPHAGEAL REFLUX DISEASE [None]
  - MYALGIA [None]
  - NASAL OPERATION [None]
  - NECK PAIN [None]
  - PAIN IN EXTREMITY [None]
  - PERIARTHRITIS [None]
  - PHARYNGEAL ERYTHEMA [None]
  - THROAT IRRITATION [None]
